FAERS Safety Report 18883429 (Version 4)
Quarter: 2021Q2

REPORT INFORMATION
  Report Type: Report from Study
  Country: CO (occurrence: CO)
  Receive Date: 20210212
  Receipt Date: 20210623
  Transmission Date: 20210717
  Serious: Yes (Other)
  Sender: FDA-Public Use
  Company Number: CO-B.I. PHARMACEUTICALS,INC./RIDGEFIELD-2020-BI-054961

PATIENT
  Age: 46 Year
  Sex: Female

DRUGS (1)
  1. GILOTRIF [Suspect]
     Active Substance: AFATINIB
     Indication: LUNG NEOPLASM MALIGNANT
     Route: 048
     Dates: start: 202008

REACTIONS (12)
  - Dry skin [Not Recovered/Not Resolved]
  - Eczema infected [Not Recovered/Not Resolved]
  - Mucosal inflammation [Recovered/Resolved]
  - Skin mass [Not Recovered/Not Resolved]
  - Acne pustular [Not Recovered/Not Resolved]
  - Acne [Not Recovered/Not Resolved]
  - Lip erosion [Recovered/Resolved]
  - Seborrhoeic dermatitis [Recovering/Resolving]
  - Sensitive skin [Unknown]
  - Erythema [Recovering/Resolving]
  - Acne [Not Recovered/Not Resolved]
  - Skin exfoliation [Recovering/Resolving]

NARRATIVE: CASE EVENT DATE: 20200930
